FAERS Safety Report 22320536 (Version 3)
Quarter: 2023Q4

REPORT INFORMATION
  Report Type: Report from Study
  Country: CA (occurrence: CA)
  Receive Date: 20230515
  Receipt Date: 20231019
  Transmission Date: 20240110
  Serious: Yes (Hospitalization)
  Sender: FDA-Public Use
  Company Number: CA-MYLANLABS-2022M1038119

PATIENT
  Age: 75 Year
  Sex: Female

DRUGS (2)
  1. HULIO [Suspect]
     Active Substance: ADALIMUMAB-FKJP
     Indication: Rheumatoid arthritis
     Dosage: 40 MILLIGRAM, BIWEEKLY
     Route: 058
  2. HULIO [Suspect]
     Active Substance: ADALIMUMAB-FKJP
     Dosage: 40 MILLIGRAM, QW (EVERY WEEK)
     Route: 058
     Dates: start: 20211123

REACTIONS (7)
  - Hospitalisation [Unknown]
  - Pain [Unknown]
  - Oral infection [Unknown]
  - Lip swelling [Unknown]
  - Urinary tract infection [Unknown]
  - Product dose omission issue [Unknown]
  - Off label use [Unknown]
